FAERS Safety Report 9916573 (Version 2)
Quarter: 2014Q1

REPORT INFORMATION
  Report Type: Spontaneous
  Country: US (occurrence: US)
  Receive Date: 20140221
  Receipt Date: 20140325
  Transmission Date: 20141002
  Serious: Yes (Hospitalization)
  Sender: FDA-Public Use
  Company Number: US-BAYER-2014-027393

PATIENT
  Age: 25 Year
  Sex: Female
  Weight: 70.3 kg

DRUGS (4)
  1. MIRENA [Suspect]
     Indication: CONTRACEPTION
     Dosage: 20 MCG/24HR, CONT
     Dates: start: 20111128, end: 20120126
  2. MIRENA [Suspect]
     Indication: MENORRHAGIA
  3. CEPHALEXIN [Concomitant]
     Indication: INGROWN HAIR
     Dosage: UNK
     Dates: start: 20111230
  4. HYDROCODONE [Concomitant]
     Dosage: UNK
     Dates: start: 20111230

REACTIONS (4)
  - Uterine perforation [None]
  - Injury [None]
  - Pain [None]
  - Emotional distress [None]
